FAERS Safety Report 5272119-7 (Version None)
Quarter: 2007Q1

REPORT INFORMATION
  Report Type: 
  Country: None (occurrence: None)
  Receive Date: 20070319
  Receipt Date: 20070301
  Transmission Date: 20070707
  Serious: Yes (Other)
  Sender: FDA-Public Use
  Company Number: 011489

PATIENT
  Age: 63 Year
  Sex: Male

DRUGS (1)
  1. THEOPHYLLINE [Suspect]
     Indication: CHRONIC OBSTRUCTIVE PULMONARY DISEASE
     Dosage: 300 MG, QD, ORAL
     Route: 048
     Dates: start: 20060131, end: 20070223

REACTIONS (2)
  - FALL [None]
  - LOSS OF CONSCIOUSNESS [None]
